FAERS Safety Report 13880274 (Version 3)
Quarter: 2017Q4

REPORT INFORMATION
  Report Type: Spontaneous
  Country: JP (occurrence: JP)
  Receive Date: 20170818
  Receipt Date: 20171208
  Transmission Date: 20180320
  Serious: Yes (Hospitalization, Other)
  Sender: FDA-Public Use
  Company Number: JP-GLAXOSMITHKLINE-JP2017JPN126272

PATIENT
  Age: 84 Year
  Sex: Male
  Weight: 62 kg

DRUGS (15)
  1. LOXOPROFEN NA TABLETS [Concomitant]
     Dosage: UNK, PRN
     Dates: start: 20170808
  2. REBAMIPIDE TABLETS [Concomitant]
     Dosage: UNK
  3. XALATAN [Concomitant]
     Active Substance: LATANOPROST
     Dosage: UNK
  4. MICOMBI [Concomitant]
     Active Substance: HYDROCHLOROTHIAZIDE\TELMISARTAN
     Dosage: UNK
     Dates: end: 20170808
  5. LOXOPROFEN NA TABLETS [Concomitant]
     Indication: PAIN
     Dosage: UNK
  6. LYRICA [Concomitant]
     Active Substance: PREGABALIN
     Dosage: 150 MG, 1D
     Dates: start: 20170807
  7. GASMOTIN TABLET [Concomitant]
     Dosage: UNK
  8. FEBURIC TABLETS [Concomitant]
     Active Substance: FEBUXOSTAT
     Dosage: UNK
     Dates: end: 20170808
  9. VALTREX [Suspect]
     Active Substance: VALACYCLOVIR HYDROCHLORIDE
     Indication: HERPES ZOSTER
     Dosage: 3000 MG, 1D
     Route: 048
     Dates: start: 20170804, end: 20170808
  10. THYRADIN S [Concomitant]
     Active Substance: LEVOTHYROXINE SODIUM
     Dosage: UNK
  11. BISOPROLOL FUMARATE TABLET [Concomitant]
     Dosage: UNK
  12. TIMOPTOL-XE [Concomitant]
     Active Substance: TIMOLOL
     Dosage: UNK
  13. XARELTO [Concomitant]
     Active Substance: RIVAROXABAN
     Dosage: UNK
  14. BISOPROLOL FUMARATE TABLET [Concomitant]
     Dosage: 5 MG, 1D
     Dates: start: 20170822
  15. LYRICA [Concomitant]
     Active Substance: PREGABALIN
     Dosage: UNK

REACTIONS (15)
  - Meningitis viral [Recovering/Resolving]
  - Agitation [Unknown]
  - Hypophagia [Unknown]
  - Hyponatraemia [Recovered/Resolved]
  - Autoimmune encephalopathy [Recovering/Resolving]
  - Altered state of consciousness [Recovered/Resolved]
  - Nausea [Recovered/Resolved]
  - Dizziness [Recovering/Resolving]
  - Hypokalaemia [Recovered/Resolved]
  - Subdural haematoma [Recovering/Resolving]
  - Dyskinesia [Unknown]
  - Pain [Unknown]
  - Hypoxia [Recovered/Resolved]
  - Decreased appetite [Unknown]
  - Infection [Unknown]

NARRATIVE: CASE EVENT DATE: 2017
